FAERS Safety Report 18483222 (Version 1)
Quarter: 2020Q4

REPORT INFORMATION
  Report Type: Spontaneous
  Country: DE (occurrence: DE)
  Receive Date: 20201110
  Receipt Date: 20201110
  Transmission Date: 20210114
  Serious: Yes (Other)
  Sender: FDA-Public Use
  Company Number: DE-CELLTRION INC.-2020DE030894

PATIENT

DRUGS (15)
  1. IFOSFAMIDE. [Suspect]
     Active Substance: IFOSFAMIDE
     Indication: CENTRAL NERVOUS SYSTEM LYMPHOMA
     Dosage: 800 MG/M2, DAY 2-4, CYCLE 1-3 (1 CYCLE = 2 WEEKS)
     Route: 042
  2. ARA-C [Suspect]
     Active Substance: CYTARABINE
     Indication: CENTRAL NERVOUS SYSTEM LYMPHOMA
     Dosage: 3000 MG/M2, DAY 1-2, CYCLE 4+6 (1 CYCLE = 3 WEEKS)
     Route: 042
  3. ARA-C [Suspect]
     Active Substance: CYTARABINE
     Dosage: 10 MG, DAY 5, CYCLE 5 (1 CYCLE = 2 WEEKS)
  4. PREDNISOLONE. [Suspect]
     Active Substance: PREDNISOLONE
     Dosage: 3 MG, DAY 2-4, CYCLE 5 (1 CYCLE = 2 WEEKS), ICV/INTRACEREBROVENTRICULAR ROUTE WITH MTX
  5. RITUXIMAB (UNKNOWN) [Suspect]
     Active Substance: RITUXIMAB
     Indication: CENTRAL NERVOUS SYSTEM LYMPHOMA
     Dosage: 375 MG/M2, DAY 0, CYCLE 1-3 (1 CYCLE = 2 WEEKS)
     Route: 042
  6. PREDNISOLONE. [Suspect]
     Active Substance: PREDNISOLONE
     Indication: CENTRAL NERVOUS SYSTEM LYMPHOMA
     Dosage: 3 MG, DAY 3-5, CYCLE 4+6 (1 CYCLE = 3 WEEKS), ICV/INTRACEREBROVENTRICULAR ROUTE WITH MTX
  7. METHOTREXATE. [Suspect]
     Active Substance: METHOTREXATE
     Indication: CENTRAL NERVOUS SYSTEM LYMPHOMA
     Dosage: 4000 MG/M2, DAY 1, CYCLE 1-3 (1 CYCLE = 2 WEEKS)
     Route: 042
  8. METHOTREXATE. [Suspect]
     Active Substance: METHOTREXATE
     Dosage: 2.5 MG, DAY 3-5, CYCLE 4+6 (1 CYCLE = 3 WEEKS)
  9. ARA-C [Suspect]
     Active Substance: CYTARABINE
     Dosage: 10 MG, DAY 6, CYCLE 4+6 (1 CYCLE = 3 WEEKS)
  10. SULFAMETHOXAZOLE+TRIMETHOPRIM [Suspect]
     Active Substance: SULFAMETHOXAZOLE\TRIMETHOPRIM
     Indication: PRODUCT USED FOR UNKNOWN INDICATION
     Dosage: UNK, AT EACH CYCLE
  11. GRANULOCYTE COLONY STIMULATING FACTOR [Suspect]
     Active Substance: GRANULOCYTE COLONY-STIMULATING FACTOR NOS
     Indication: PROPHYLAXIS
     Dosage: UNK, AT EACH CYCLE
  12. METHOTREXATE. [Suspect]
     Active Substance: METHOTREXATE
     Dosage: 4000 MG/M2, DAY 1, CYCLE 5 (1 CYCLE = 2 WEEKS)
     Route: 042
  13. METHOTREXATE. [Suspect]
     Active Substance: METHOTREXATE
     Dosage: 2,5 MG, DAY 2-4, CYCLE 5 (1 CYCLE = 2 WEEKS)
  14. IFOSFAMIDE. [Suspect]
     Active Substance: IFOSFAMIDE
     Dosage: 800 MG/M2, DAY 2-4, CYCLE 5 (1 CYCLE = 2 WEEKS)
     Route: 042
  15. ACICLOVIR [Suspect]
     Active Substance: ACYCLOVIR
     Indication: PRODUCT USED FOR UNKNOWN INDICATION
     Dosage: UNK, AT EACH CYCLE

REACTIONS (1)
  - Deep vein thrombosis [Unknown]
